FAERS Safety Report 12093026 (Version 2)
Quarter: 2016Q1

REPORT INFORMATION
  Report Type: Spontaneous
  Country: US (occurrence: US)
  Receive Date: 20160219
  Receipt Date: 20160304
  Transmission Date: 20160526
  Serious: Yes (Other)
  Sender: FDA-Public Use
  Company Number: US-PFIZER INC-2016092514

PATIENT
  Age: 73 Year
  Sex: Female
  Weight: 60.32 kg

DRUGS (1)
  1. SUTENT [Suspect]
     Active Substance: SUNITINIB MALATE
     Indication: RENAL CELL CARCINOMA
     Dosage: 50 MG, DAILY CYCLIC (DAY 1-28 EVERY 42 DAYS)
     Route: 048
     Dates: start: 20151205

REACTIONS (1)
  - Blood pressure increased [Unknown]
